FAERS Safety Report 12929728 (Version 3)
Quarter: 2019Q4

REPORT INFORMATION
  Report Type: Spontaneous
  Country: US (occurrence: US)
  Receive Date: 20161110
  Receipt Date: 20191023
  Transmission Date: 20200122
  Serious: Yes (Other)
  Sender: FDA-Public Use
  Company Number: US-PFIZER INC-2016523092

PATIENT
  Age: 60 Year
  Sex: Male

DRUGS (65)
  1. VIAGRA [Suspect]
     Active Substance: SILDENAFIL CITRATE
     Indication: ERECTILE DYSFUNCTION
     Dosage: 100 MG, AS NEEDED (HALF TABLET PRN, QTY 8)
     Route: 048
     Dates: start: 20040804
  2. VIAGRA [Suspect]
     Active Substance: SILDENAFIL CITRATE
     Dosage: UNK
     Route: 048
     Dates: start: 200404, end: 201103
  3. VIAGRA [Suspect]
     Active Substance: SILDENAFIL CITRATE
     Dosage: UNK (1 SAMPLE)
     Route: 048
     Dates: start: 20060619
  4. VIAGRA [Suspect]
     Active Substance: SILDENAFIL CITRATE
     Dosage: 100 MG, AS NEEDED (HALF TABLET PRN, QTY 8)
     Route: 048
     Dates: start: 20041031
  5. VIAGRA [Suspect]
     Active Substance: SILDENAFIL CITRATE
     Dosage: 100 MG, AS NEEDED (HALF TABLET PRN, QTY 8)
     Route: 048
     Dates: start: 20050119
  6. VIAGRA [Suspect]
     Active Substance: SILDENAFIL CITRATE
     Dosage: 100 MG, (USE AS DIRECTED, QTY 1)
     Route: 048
     Dates: start: 20100221
  7. CIALIS [Suspect]
     Active Substance: TADALAFIL
     Dosage: 20 MG, UNK (USE AS DIRECTED, QTY 30)
     Route: 048
     Dates: start: 20081224
  8. NORCO [Concomitant]
     Active Substance: ACETAMINOPHEN\HYDROCODONE BITARTRATE
     Indication: PAIN MANAGEMENT
     Dosage: UNK
     Dates: start: 201501
  9. GABAPENTIN. [Concomitant]
     Active Substance: GABAPENTIN
     Dosage: UNK
     Dates: start: 201501
  10. VITAMIN C [Concomitant]
     Active Substance: ASCORBIC ACID
     Indication: VITAMIN SUPPLEMENTATION
     Dosage: UNK
     Dates: start: 201501
  11. VIAGRA [Suspect]
     Active Substance: SILDENAFIL CITRATE
     Dosage: 100 MG, AS NEEDED (HALF TABLET PRN, QTY 8)
     Route: 048
     Dates: start: 20050422
  12. VIAGRA [Suspect]
     Active Substance: SILDENAFIL CITRATE
     Dosage: 100 MG, (USE AS DIRECTED, QTY 6)
     Route: 048
     Dates: start: 20110628
  13. VIAGRA [Suspect]
     Active Substance: SILDENAFIL CITRATE
     Dosage: 100 MG, (USE AS DIRECTED)
     Route: 048
     Dates: start: 20111221
  14. VIAGRA [Suspect]
     Active Substance: SILDENAFIL CITRATE
     Dosage: 100 MG, (USE AS DIRECTED)
     Route: 048
     Dates: start: 20130402
  15. VIAGRA [Suspect]
     Active Substance: SILDENAFIL CITRATE
     Dosage: 100 MG, (USE AS DIRECTED)
     Route: 048
     Dates: start: 20130517
  16. VIAGRA [Suspect]
     Active Substance: SILDENAFIL CITRATE
     Dosage: 100 MG, (USE AS DIRECTED)
     Route: 048
     Dates: start: 20131224
  17. ALLOPURINOL. [Concomitant]
     Active Substance: ALLOPURINOL
     Indication: GOUT
     Dosage: UNK
     Dates: start: 201201
  18. SULFAMETHOXAZOLE [Concomitant]
     Active Substance: SULFAMETHOXAZOLE
     Indication: INFECTION
     Dosage: UNK
     Dates: start: 201909
  19. BELSOMRA [Concomitant]
     Active Substance: SUVOREXANT
     Indication: INSOMNIA
     Dosage: UNK
     Dates: start: 201804
  20. CITRUCEL [Concomitant]
     Active Substance: METHYLCELLULOSE (4000 MPA.S)
     Indication: FAECES SOFT
     Dosage: UNK
     Dates: start: 201501
  21. VIAGRA [Suspect]
     Active Substance: SILDENAFIL CITRATE
     Dosage: 100 MG, UNK (USE AS DIRECTED)
     Route: 048
     Dates: start: 20081230, end: 20090601
  22. VIAGRA [Suspect]
     Active Substance: SILDENAFIL CITRATE
     Dosage: 100 MG, (USE AS DIRECTED, QTY 6)
     Route: 048
     Dates: start: 20101220
  23. VIAGRA [Suspect]
     Active Substance: SILDENAFIL CITRATE
     Dosage: 100 MG, (USE AS DIRECTED)
     Route: 048
     Dates: start: 20130821
  24. CIALIS [Suspect]
     Active Substance: TADALAFIL
     Indication: ERECTILE DYSFUNCTION
     Dosage: 20 MG, UNK (USE AS DIRECTED, QTY 30)
     Route: 048
     Dates: start: 20080402, end: 20081224
  25. CIALIS [Suspect]
     Active Substance: TADALAFIL
     Dosage: 10 MG, (1 TABLET PRN, QTY 5)
     Route: 048
     Dates: start: 20150209, end: 20150214
  26. LISINOPRIL. [Concomitant]
     Active Substance: LISINOPRIL
     Indication: HYPERTENSION
     Dosage: UNK
     Dates: start: 201201, end: 201603
  27. VIAGRA [Suspect]
     Active Substance: SILDENAFIL CITRATE
     Dosage: 100 MG, (USE AS DIRECTED, QTY 9)
     Route: 048
     Dates: start: 20090601
  28. VIAGRA [Suspect]
     Active Substance: SILDENAFIL CITRATE
     Dosage: 100 MG, (USE AS DIRECTED, QTY 8)
     Route: 048
     Dates: start: 20100909
  29. VIAGRA [Suspect]
     Active Substance: SILDENAFIL CITRATE
     Dosage: 100 MG, (USE AS DIRECTED)
     Route: 048
     Dates: start: 20120709
  30. SILDENAFIL CITRATE. [Suspect]
     Active Substance: SILDENAFIL CITRATE
     Indication: ERECTILE DYSFUNCTION
     Dosage: UNK
     Dates: start: 200404
  31. CIALIS [Suspect]
     Active Substance: TADALAFIL
     Dosage: UNK, REGULARLY
     Route: 048
     Dates: start: 201201, end: 201502
  32. CIALIS [Suspect]
     Active Substance: TADALAFIL
     Dosage: 10 MG, (1 TABLET PRN, QTY 5)
     Route: 048
     Dates: start: 20140301, end: 20140801
  33. OXYCODONE [Concomitant]
     Active Substance: OXYCODONE
     Indication: PAIN MANAGEMENT
     Dosage: UNK
     Dates: start: 201501
  34. OMEGA-3 KRILL OIL [Concomitant]
     Indication: VITAMIN SUPPLEMENTATION
     Dosage: UNK
     Dates: start: 201501
  35. HEAL-N-SOOTHE [Concomitant]
     Dosage: UNK
     Dates: start: 201501
  36. VIAGRA [Suspect]
     Active Substance: SILDENAFIL CITRATE
     Dosage: 100 MG, UNK (USE AS DIRECTED, QTY 8)
     Route: 048
     Dates: start: 20091118, end: 20120709
  37. VIAGRA [Suspect]
     Active Substance: SILDENAFIL CITRATE
     Dosage: 100 MG, (USE AS DIRECTED, QTY 6)
     Route: 048
     Dates: start: 20110923
  38. VIAGRA [Suspect]
     Active Substance: SILDENAFIL CITRATE
     Dosage: 100 MG, UNK, AS DIRECTED
     Route: 048
     Dates: start: 20130204
  39. CIALIS [Suspect]
     Active Substance: TADALAFIL
     Dosage: 10 MG, (1 TABLET PRN)
     Route: 048
     Dates: start: 20121115, end: 20121120
  40. CIALIS [Suspect]
     Active Substance: TADALAFIL
     Dosage: 10 MG, (1 TABLET PRN, QTY 5)
     Route: 048
     Dates: start: 20140801
  41. TAMSULOSIN [Concomitant]
     Active Substance: TAMSULOSIN
     Indication: BENIGN PROSTATIC HYPERPLASIA
     Dosage: UNK
     Dates: start: 201603
  42. VIAGRA [Suspect]
     Active Substance: SILDENAFIL CITRATE
     Dosage: 100 MG, (1/2 TABLET PRN, QTY 8) AS NEEDED
     Route: 048
     Dates: start: 20040417, end: 20051015
  43. VIAGRA [Suspect]
     Active Substance: SILDENAFIL CITRATE
     Dosage: 100 MG, UNK (USE AS DIRECTED)
     Route: 048
     Dates: start: 20121217, end: 20131224
  44. VIAGRA [Suspect]
     Active Substance: SILDENAFIL CITRATE
     Dosage: 100 MG, (USE AS DIRECTED, QTY 1)
     Route: 048
     Dates: start: 20090313
  45. CIALIS [Suspect]
     Active Substance: TADALAFIL
     Dosage: 10 MG, (1 TABLET PRN, QTY 6)
     Route: 048
     Dates: start: 20120406
  46. TADALAFIL. [Suspect]
     Active Substance: TADALAFIL
     Indication: ERECTILE DYSFUNCTION
     Dosage: UNK
     Dates: start: 200804, end: 201710
  47. NISOLDIPINE. [Concomitant]
     Active Substance: NISOLDIPINE
     Indication: HYPERTENSION
     Dosage: UNK
     Dates: start: 201201, end: 201603
  48. ZYRTEC-D [Concomitant]
     Active Substance: CETIRIZINE HYDROCHLORIDE\PSEUDOEPHEDRINE HYDROCHLORIDE
     Indication: HYPERSENSITIVITY
     Dosage: UNK
     Dates: start: 201501
  49. VITAMIN D3 [Concomitant]
     Active Substance: CHOLECALCIFEROL
     Indication: VITAMIN SUPPLEMENTATION
     Dosage: UNK
     Dates: start: 201501
  50. VIAGRA [Suspect]
     Active Substance: SILDENAFIL CITRATE
     Dosage: 100 MG, AS NEEDED (HALF TABLET PRN, QTY 8)
     Route: 048
     Dates: start: 20051015
  51. VIAGRA [Suspect]
     Active Substance: SILDENAFIL CITRATE
     Dosage: 100 MG, (USE AS DIRECTED, QTY 5)
     Route: 048
     Dates: start: 20091217
  52. VIAGRA [Suspect]
     Active Substance: SILDENAFIL CITRATE
     Dosage: 100 MG, (USE AS DIRECTED)
     Route: 048
     Dates: start: 20120518
  53. CIALIS [Suspect]
     Active Substance: TADALAFIL
     Dosage: 10 MG, (1 TABLET PRN, QTY 6)
     Route: 048
     Dates: start: 20120113, end: 20120406
  54. CIALIS [Suspect]
     Active Substance: TADALAFIL
     Dosage: 10 MG, (1 TABLET PRN, QTY 5)
     Route: 048
     Dates: start: 20121105
  55. CIALIS [Suspect]
     Active Substance: TADALAFIL
     Dosage: 10 MG, (1 TABLET PRN, QTY 5)
     Route: 048
     Dates: start: 20140303
  56. VITAMIN B12 [Concomitant]
     Active Substance: CYANOCOBALAMIN
     Indication: VITAMIN SUPPLEMENTATION
     Dosage: UNK
     Dates: start: 201501
  57. ALLER TEC [Concomitant]
     Active Substance: CETIRIZINE HYDROCHLORIDE
     Indication: HYPERSENSITIVITY
     Dosage: UNK
     Dates: start: 201501
  58. VIAGRA [Suspect]
     Active Substance: SILDENAFIL CITRATE
     Dosage: 100 MG, UNK (USE AS DIRECTED)
     Route: 048
     Dates: start: 20060326, end: 20060407
  59. VIAGRA [Suspect]
     Active Substance: SILDENAFIL CITRATE
     Dosage: 100 MG, UNK (USE AS DIRECTED)
     Route: 048
     Dates: start: 20141125, end: 20141201
  60. VIAGRA [Suspect]
     Active Substance: SILDENAFIL CITRATE
     Dosage: 100 MG, (USE AS DIRECTED, QTY 10)
     Route: 048
     Dates: start: 20060328
  61. VIAGRA [Suspect]
     Active Substance: SILDENAFIL CITRATE
     Dosage: 100 MG, (USE AS DIRECTED, QTY 8)
     Route: 048
     Dates: start: 20100225
  62. VIAGRA [Suspect]
     Active Substance: SILDENAFIL CITRATE
     Dosage: 100 MG, (USE AS DIRECTED, QTY 8)
     Route: 048
     Dates: start: 20100629
  63. VIAGRA [Suspect]
     Active Substance: SILDENAFIL CITRATE
     Dosage: 100 MG, (USE AS DIRECTED, QTY 6)
     Route: 048
     Dates: start: 20110401
  64. COLCRYS [Concomitant]
     Active Substance: COLCHICINE
     Indication: GOUT
     Dosage: UNK
     Dates: start: 201201
  65. DOCUSATE [Concomitant]
     Active Substance: DOCUSATE
     Indication: FAECES SOFT
     Dosage: UNK
     Dates: start: 201501

REACTIONS (5)
  - Anxiety [Unknown]
  - Malignant melanoma [Unknown]
  - Squamous cell carcinoma [Unknown]
  - Acral lentiginous melanoma stage III [Unknown]
  - Depression [Unknown]

NARRATIVE: CASE EVENT DATE: 200801
